FAERS Safety Report 14461316 (Version 2)
Quarter: 2019Q4

REPORT INFORMATION
  Report Type: Spontaneous
  Country: US (occurrence: US)
  Receive Date: 20180130
  Receipt Date: 20191108
  Transmission Date: 20200122
  Serious: Yes (Hospitalization, Other)
  Sender: FDA-Public Use
  Company Number: US-PFIZER INC-2017441317

PATIENT
  Age: 66 Year
  Sex: Female
  Weight: 66.22 kg

DRUGS (2)
  1. XELJANZ XR [Suspect]
     Active Substance: TOFACITINIB CITRATE
     Indication: RHEUMATOID ARTHRITIS
     Dosage: 11 MG, DAILY
     Route: 048
  2. IRON [Concomitant]
     Active Substance: IRON
     Indication: IMMUNE SYSTEM DISORDER
     Dosage: 27 MG, DAILY
     Route: 048
     Dates: start: 201712

REACTIONS (3)
  - Spinal fracture [Recovering/Resolving]
  - Pain in extremity [Unknown]
  - Fall [Unknown]

NARRATIVE: CASE EVENT DATE: 201707
